FAERS Safety Report 24776106 (Version 4)
Quarter: 2025Q1

REPORT INFORMATION
  Report Type: Spontaneous
  Country: US (occurrence: US)
  Receive Date: 20241226
  Receipt Date: 20250214
  Transmission Date: 20250409
  Serious: Yes (Hospitalization, Disabling, Other)
  Sender: NOVARTIS
  Company Number: US-002147023-NVSC2024US244652

PATIENT
  Sex: Male
  Weight: 71.4 kg

DRUGS (1)
  1. PLUVICTO [Suspect]
     Active Substance: LUTETIUM LU-177 VIPIVOTIDE TETRAXETAN
     Indication: Product used for unknown indication
     Route: 042
     Dates: start: 20240822, end: 20241114

REACTIONS (5)
  - Subarachnoid haemorrhage [Unknown]
  - General physical health deterioration [Not Recovered/Not Resolved]
  - Metastatic neoplasm [Unknown]
  - Bone marrow infiltration [Unknown]
  - Bacteraemia [Unknown]
